FAERS Safety Report 7719142-8 (Version None)
Quarter: 2011Q3

REPORT INFORMATION
  Report Type: 
  Country: None (occurrence: None)
  Receive Date: 20110830
  Receipt Date: 20110819
  Transmission Date: 20111222
  Serious: Yes (Hospitalization)
  Sender: FDA-Public Use
  Company Number: US-BAYER-2011-023491

PATIENT
  Age: 25 Year
  Sex: Female
  Weight: 79 kg

DRUGS (3)
  1. PREVACID [Concomitant]
     Dosage: 30 MG, UNK
  2. YAZ [Suspect]
     Indication: ORAL CONTRACEPTION
     Dosage: UNK
     Route: 048
     Dates: start: 20071201, end: 20081001
  3. ACETAMINOPHEN AND HYDROCODONE BITARTRATE [Concomitant]
     Indication: PAIN
     Dosage: UNK
     Dates: start: 20060201, end: 20080501

REACTIONS (14)
  - DEPRESSION [None]
  - ABDOMINAL DISTENSION [None]
  - GALLBLADDER DISORDER [None]
  - DIARRHOEA [None]
  - CHOLECYSTITIS CHRONIC [None]
  - DYSPEPSIA [None]
  - PAIN [None]
  - SCAR [None]
  - CHOLELITHIASIS [None]
  - ANXIETY [None]
  - BILE DUCT STONE [None]
  - INJURY [None]
  - FLATULENCE [None]
  - CONSTIPATION [None]
